FAERS Safety Report 8886859 (Version 1)
Quarter: 2012Q4

REPORT INFORMATION
  Report Type: 
  Country: ZA (occurrence: ZA)
  Receive Date: 20121105
  Receipt Date: 20121105
  Transmission Date: 20130627
  Serious: Yes (Hospitalization, Other)
  Sender: FDA-Public Use
  Company Number: ZA-ELI_LILLY_AND_COMPANY-ZA201210009173

PATIENT
  Age: 56 Year
  Sex: Male

DRUGS (4)
  1. HUMALOG 25% LISPRO, 75% NPL [Suspect]
     Indication: DIABETES MELLITUS
     Dosage: 24 u, each morning
     Route: 058
     Dates: start: 201110
  2. HUMALOG 25% LISPRO, 75% NPL [Suspect]
     Dosage: 20 u, each evening
     Route: 058
     Dates: start: 201110
  3. TAREG [Concomitant]
     Indication: BLOOD PRESSURE
     Dosage: 1 DF, qd
     Route: 048
  4. PURICOS [Concomitant]
     Indication: GOUT
     Dosage: 1 DF, qd
     Route: 048

REACTIONS (3)
  - Road traffic accident [Unknown]
  - Joint injury [Unknown]
  - Skin graft [Unknown]
